FAERS Safety Report 7692723-6 (Version None)
Quarter: 2011Q3

REPORT INFORMATION
  Report Type: 
  Country: None (occurrence: None)
  Receive Date: 20110819
  Receipt Date: 20110817
  Transmission Date: 20111222
  Serious: No
  Sender: FDA-Public Use
  Company Number: US-PFIZER INC-2011189889

PATIENT
  Sex: Male
  Weight: 104.31 kg

DRUGS (1)
  1. ADVIL LIQUI-GELS [Suspect]
     Indication: BACK PAIN
     Dosage: 200 MG, 4X/DAY
     Route: 048
     Dates: start: 20110816, end: 20110817

REACTIONS (6)
  - DRUG ADMINISTRATION ERROR [None]
  - FLUSHING [None]
  - MALAISE [None]
  - DYSPEPSIA [None]
  - ASTHENIA [None]
  - FATIGUE [None]
